FAERS Safety Report 26083924 (Version 2)
Quarter: 2025Q4

REPORT INFORMATION
  Report Type: Spontaneous
  Country: US (occurrence: US)
  Receive Date: 20251124
  Receipt Date: 20251209
  Transmission Date: 20260117
  Serious: Yes (Hospitalization)
  Sender: ABBVIE
  Company Number: US-ABBVIE-6560636

PATIENT

DRUGS (4)
  1. SYNTHROID [Suspect]
     Active Substance: LEVOTHYROXINE SODIUM
     Indication: Product used for unknown indication
     Dosage: 150 MICROGRAM
     Route: 048
     Dates: start: 1987
  2. SYNTHROID [Suspect]
     Active Substance: LEVOTHYROXINE SODIUM
     Indication: Product used for unknown indication
     Dosage: 75 MICROGRAMS
     Route: 048
  3. LITHIUM [Suspect]
     Active Substance: LITHIUM
     Indication: Bipolar I disorder
     Route: 065
     Dates: end: 2015
  4. BIOTRUE HYDRATION BOOST [Suspect]
     Active Substance: GLYCERIN
     Indication: Product used for unknown indication
     Route: 065

REACTIONS (6)
  - Norovirus infection [Unknown]
  - Product colour issue [Unknown]
  - Bipolar I disorder [Unknown]
  - Hypothyroidism [Recovering/Resolving]
  - Withdrawal syndrome [Unknown]
  - Product packaging quantity issue [Unknown]

NARRATIVE: CASE EVENT DATE: 20250101
